FAERS Safety Report 9840086 (Version 1)
Quarter: 2013Q4

REPORT INFORMATION
  Report Type: Spontaneous
  Country: US (occurrence: None)
  Receive Date: 20131211
  Receipt Date: 20131211
  Transmission Date: 20140711
  Serious: No
  Sender: FDA-Public Use
  Company Number: ALL1-2011-03520

PATIENT
  Age: 55 Year
  Sex: Male

DRUGS (1)
  1. FIRAZYR [Suspect]
     Dosage: 30 MG, UNKNOWN, SUBCUTANOUES
     Route: 058
     Dates: start: 20110920

REACTIONS (1)
  - Drug effect delayed [None]
